FAERS Safety Report 9997082 (Version 1)
Quarter: 2014Q1

REPORT INFORMATION
  Report Type: Spontaneous
  Country: US (occurrence: US)
  Receive Date: 20140311
  Receipt Date: 20140311
  Transmission Date: 20141002
  Serious: Yes (Other)
  Sender: FDA-Public Use
  Company Number: US-ENDO PHARMACEUTICALS INC.-MECL20130007

PATIENT
  Sex: Female
  Weight: 108.96 kg

DRUGS (6)
  1. MECLIZINE HYDROCHLORIDE TABLETS 25MG [Suspect]
     Indication: DIZZINESS
     Route: 048
  2. PRISTIQ [Suspect]
     Indication: DEPRESSION
     Route: 048
  3. BENADRYL [Suspect]
     Indication: PRODUCT USED FOR UNKNOWN INDICATION
     Route: 048
  4. VISTARIL [Suspect]
     Indication: ANXIETY
     Dosage: UNKNOWN
     Route: 048
  5. LASIX [Suspect]
     Indication: FLUID RETENTION
     Route: 048
  6. ZANAFLEX [Suspect]
     Indication: HYPOTONIA
     Route: 048

REACTIONS (4)
  - Dry throat [Not Recovered/Not Resolved]
  - Diabetes mellitus [Unknown]
  - Hunger [Unknown]
  - Blood cholesterol abnormal [Recovered/Resolved]
